FAERS Safety Report 4703899-4 (Version None)
Quarter: 2005Q2

REPORT INFORMATION
  Report Type: 
  Country: None (occurrence: None)
  Receive Date: 20050629
  Receipt Date: 20050629
  Transmission Date: 20051028
  Serious: Yes (Disabling)
  Sender: FDA-Public Use
  Company Number: None

PATIENT
  Age: 29 Year
  Sex: Male
  Weight: 92 kg

DRUGS (6)
  1. LEVAQUIN [Suspect]
     Indication: BRONCHITIS
     Dosage: ORAL
     Route: 048
     Dates: start: 20050325, end: 20050404
  2. LEVAQUIN [Suspect]
     Indication: SINUSITIS
     Dosage: ORAL
     Route: 048
     Dates: start: 20050325, end: 20050404
  3. LEVAQUIN [Concomitant]
  4. ZITHROMAX [Concomitant]
  5. ROBITUSSIN [Concomitant]
  6. TYLENOL [Concomitant]

REACTIONS (7)
  - ANOREXIA [None]
  - HEPATIC FAILURE [None]
  - HEPATITIS ACUTE [None]
  - MALAISE [None]
  - NAUSEA [None]
  - RENAL FAILURE ACUTE [None]
  - VOMITING [None]
